FAERS Safety Report 5451226-X (Version None)
Quarter: 2007Q3

REPORT INFORMATION
  Report Type: 
  Country: None (occurrence: None)
  Receive Date: 20070913
  Receipt Date: 20070831
  Transmission Date: 20080115
  Serious: Yes (Hospitalization)
  Sender: FDA-Public Use
  Company Number: US-ELI_LILLY_AND_COMPANY-US97044300A

PATIENT
  Age: 33 Year
  Sex: Female
  Weight: 80 kg

DRUGS (13)
  1. DEPAKOTE [Concomitant]
     Indication: BIPOLAR I DISORDER
  2. KLONOPIN [Concomitant]
     Indication: BIPOLAR I DISORDER
  3. WELLBUTRIN [Concomitant]
     Indication: BIPOLAR I DISORDER
  4. ZYPREXA [Suspect]
     Indication: SCHIZOAFFECTIVE DISORDER
     Dosage: 20 MG, EACH MORNING
     Dates: start: 20060601
  5. ZYPREXA [Suspect]
     Dosage: 10 MG, DAILY (1/D)
     Route: 048
     Dates: start: 19961101
  6. ZYPREXA [Suspect]
     Dosage: 20 MG, EACH MORNING
     Dates: end: 20060101
  7. ZYPREXA [Suspect]
     Dosage: 7.5 MG, UNK
  8. EFFEXOR                            /01233802/ [Concomitant]
     Dosage: UNK, UNKNOWN
  9. GLYCOLAX [Concomitant]
     Indication: CONSTIPATION
  10. METAMUCIL [Concomitant]
     Indication: CONSTIPATION
  11. TOPAMAX [Concomitant]
     Indication: WEIGHT DECREASED
     Dosage: 25 MG, UNK
  12. TOPAMAX [Concomitant]
     Dosage: 50 MG, UNK
  13. TOPAMAX [Concomitant]
     Dosage: 75 MG, UNK

REACTIONS (10)
  - DELUSION [None]
  - DEPRESSION [None]
  - DRUG INTERACTION [None]
  - EMOTIONAL DISORDER [None]
  - INCREASED APPETITE [None]
  - MENTAL DISORDER [None]
  - METABOLIC DISORDER [None]
  - THERAPEUTIC RESPONSE DECREASED [None]
  - UNEMPLOYMENT [None]
  - WEIGHT INCREASED [None]
